FAERS Safety Report 23170760 (Version 1)
Quarter: 2023Q4

REPORT INFORMATION
  Report Type: Spontaneous
  Country: US (occurrence: US)
  Receive Date: 20231110
  Receipt Date: 20231110
  Transmission Date: 20240110
  Serious: Yes (Other)
  Sender: FDA-Public Use
  Company Number: US-MYLANLABS-2023M1118084

PATIENT
  Age: 26 Year
  Sex: Female

DRUGS (10)
  1. ETOPOSIDE [Suspect]
     Active Substance: ETOPOSIDE
     Indication: Vulval cancer
     Dosage: UNK, CYCLE; PART OF BEP REGIMEN FOR 4 CYCLES
     Route: 065
  2. ETOPOSIDE [Suspect]
     Active Substance: ETOPOSIDE
     Indication: Yolk sac tumour site unspecified
     Dosage: UNK, CYCLE; PART OF ICE REGIMEN FOR 2 CYCLES
     Route: 065
  3. CISPLATIN [Suspect]
     Active Substance: CISPLATIN
     Indication: Vulval cancer
     Dosage: UNK, CYCLE; PART OF BEP REGIMEN, 4 CYCLES
     Route: 065
  4. CISPLATIN [Suspect]
     Active Substance: CISPLATIN
     Indication: Yolk sac tumour site unspecified
  5. IFOSFAMIDE [Suspect]
     Active Substance: IFOSFAMIDE
     Indication: Vulval cancer
     Dosage: UNK, CYCLE; PART OF ICE REGIMEN FOR 2 CYCLES
     Route: 065
  6. IFOSFAMIDE [Suspect]
     Active Substance: IFOSFAMIDE
     Indication: Yolk sac tumour site unspecified
  7. CARBOPLATIN [Suspect]
     Active Substance: CARBOPLATIN
     Indication: Vulval cancer
     Dosage: UNK, CYCLE; PART OF ICE REGIMEN FOR 2 CYCLES
     Route: 065
  8. CARBOPLATIN [Suspect]
     Active Substance: CARBOPLATIN
     Indication: Yolk sac tumour site unspecified
  9. BLEOMYCIN [Suspect]
     Active Substance: BLEOMYCIN SULFATE
     Indication: Vulval cancer
     Dosage: UNK, CYCLE; PART OF BEP REGIMEN, 4 CYCLES
     Route: 065
  10. BLEOMYCIN [Suspect]
     Active Substance: BLEOMYCIN SULFATE
     Indication: Yolk sac tumour site unspecified

REACTIONS (2)
  - Disease progression [Unknown]
  - Drug ineffective [Unknown]
